FAERS Safety Report 8108771-8 (Version None)
Quarter: 2012Q1

REPORT INFORMATION
  Report Type: 
  Country: None (occurrence: None)
  Receive Date: 20120202
  Receipt Date: 20120130
  Transmission Date: 20120608
  Serious: Yes (Death, Other)
  Sender: FDA-Public Use
  Company Number: PHHY2012DK007700

PATIENT
  Sex: Female
  Weight: 46 kg

DRUGS (15)
  1. FLUCONAZOLE [Concomitant]
     Dosage: 200 MG, UNK
     Route: 048
  2. VALACYCLOVIR HYDROCHLORIDE [Concomitant]
     Dosage: 500 MG, UNK
     Route: 048
     Dates: start: 20100427
  3. GENTAMICIN [Concomitant]
     Dosage: 120 MG, UNK
     Route: 042
     Dates: start: 20100519
  4. RITUXIMAB [Suspect]
     Indication: DIFFUSE LARGE B-CELL LYMPHOMA
     Dosage: 500 MG, UNK
     Route: 042
     Dates: start: 20100512
  5. VINBLASTINE SULFATE [Suspect]
     Indication: NEUROTOXICITY
  6. PIPERACILLIN AND TAZOBACTAM [Concomitant]
     Dosage: 12 MG, UNK
     Route: 042
     Dates: start: 20100519
  7. LEVOTHYROXINE SODIUM [Concomitant]
     Indication: HYPOTHYROIDISM
     Dosage: 50 MUG, UNK
     Route: 048
     Dates: start: 20100427
  8. DOXORUBICIN HCL [Suspect]
     Indication: DIFFUSE LARGE B-CELL LYMPHOMA
     Dosage: 36 MG, UNK
     Route: 042
     Dates: start: 20100512
  9. PREDNISONE TAB [Suspect]
     Dosage: 100 MG, UNK
     Route: 048
     Dates: start: 20100512
  10. NEUPOGEN [Concomitant]
     Indication: DIFFUSE LARGE B-CELL LYMPHOMA
     Dosage: 6 MG, UNK
     Route: 058
     Dates: start: 20100513
  11. PANTOPRAZOLE SODIUM [Concomitant]
     Indication: GASTRITIS
     Route: 048
     Dates: start: 20100514
  12. CALCIUM-SANDOZ [Concomitant]
     Dosage: 1000 MG, UNK
     Route: 048
     Dates: start: 20100428
  13. VINBLASTINE SULFATE [Suspect]
     Indication: DIFFUSE LARGE B-CELL LYMPHOMA
     Dosage: 8.8 MG, UNK
     Route: 042
     Dates: start: 20100512
  14. CYCLOPHOSPHAMIDE [Suspect]
     Indication: DIFFUSE LARGE B-CELL LYMPHOMA
     Dosage: 550 MG, UNK
     Route: 042
     Dates: start: 20100512
  15. BACTRIM [Concomitant]
     Dosage: 480 MG, UNK
     Route: 048
     Dates: start: 20100427

REACTIONS (3)
  - ILEUS [None]
  - NEUROTOXICITY [None]
  - MALAISE [None]
